FAERS Safety Report 4730174-4 (Version None)
Quarter: 2005Q3

REPORT INFORMATION
  Report Type: 
  Country: None (occurrence: None)
  Receive Date: 20050801
  Receipt Date: 20050722
  Transmission Date: 20060218
  Serious: Yes (Death, Hospitalization)
  Sender: FDA-Public Use
  Company Number: US-GLAXOSMITHKLINE-A0567985A

PATIENT
  Age: 49 Year
  Sex: Female
  Weight: 61.8 kg

DRUGS (2)
  1. TOPOTECAN [Suspect]
     Dosage: .75MGM2 CYCLIC
     Route: 042
     Dates: start: 20050312, end: 20050313
  2. CISPLATIN [Suspect]
     Dosage: 50MGM2 CYCLIC
     Route: 042
     Dates: start: 20020312, end: 20020312

REACTIONS (6)
  - ABDOMINAL PAIN [None]
  - CARDIAC ARREST [None]
  - CONFUSIONAL STATE [None]
  - INTESTINAL OBSTRUCTION [None]
  - PLEURAL EFFUSION [None]
  - RESPIRATORY FAILURE [None]
